FAERS Safety Report 4624619-8 (Version None)
Quarter: 2005Q1

REPORT INFORMATION
  Report Type: 
  Country: None (occurrence: None)
  Receive Date: 20050107
  Receipt Date: 20041130
  Transmission Date: 20050727
  Serious: No
  Sender: FDA-Public Use
  Company Number: 235828K04USA

PATIENT
  Age: 54 Year
  Sex: Female

DRUGS (2)
  1. REBIF [Suspect]
     Indication: MULTIPLE SCLEROSIS
     Dosage: 44 MCG 3 IN 1 WEEKS SUBCUTANEOUS, 22 MCG 3 IN 1 WEEKS SUBCUTANEOUS
     Route: 058
     Dates: start: 20041025, end: 20040101
  2. REBIF [Suspect]
     Indication: MULTIPLE SCLEROSIS
     Dosage: 44 MCG 3 IN 1 WEEKS SUBCUTANEOUS, 22 MCG 3 IN 1 WEEKS SUBCUTANEOUS
     Route: 058
     Dates: start: 20040101, end: 20041122

REACTIONS (2)
  - DIARRHOEA [None]
  - MIGRAINE [None]
